FAERS Safety Report 7588655-4 (Version None)
Quarter: 2011Q3

REPORT INFORMATION
  Report Type: 
  Country: None (occurrence: None)
  Receive Date: 20110705
  Receipt Date: 20110622
  Transmission Date: 20111222
  Serious: Yes (Life-Threatening)
  Sender: FDA-Public Use
  Company Number: JP-AMGEN-JPNSP2011033597

PATIENT
  Age: 1 Year
  Sex: Male

DRUGS (3)
  1. PREDNISOLONE [Concomitant]
     Dosage: UNCERTAINTY
     Route: 048
  2. ROMIPLATE [Suspect]
     Indication: IDIOPATHIC THROMBOCYTOPENIC PURPURA
     Dosage: 0.2 A?G/KG, UNK
     Route: 058
     Dates: start: 20110601
  3. DECADRON [Concomitant]
     Dosage: UNCERTAINTY
     Route: 048

REACTIONS (1)
  - PNEUMOCYSTIS JIROVECI PNEUMONIA [None]
